FAERS Safety Report 9120025 (Version 2)
Quarter: 2013Q2

REPORT INFORMATION
  Report Type: Report from Study
  Country: FR (occurrence: FR)
  Receive Date: 20130226
  Receipt Date: 20130402
  Transmission Date: 20140414
  Serious: Yes (Death, Hospitalization)
  Sender: FDA-Public Use
  Company Number: FR-009507513-2008SP001615

PATIENT
  Age: 77 Year
  Sex: Male
  Weight: 74.2 kg

DRUGS (17)
  1. BLINDED PEGINTERFERON ALFA-2B [Suspect]
     Indication: HEPATITIS C
     Dosage: 1000 MG, QD
     Dates: start: 20070316, end: 20071128
  2. BLINDED PLACEBO [Suspect]
     Indication: HEPATITIS C
     Dosage: 1000 MG, QD
     Dates: start: 20070316, end: 20071128
  3. BLINDED POST TRIAL THERAPY [Suspect]
     Indication: HEPATITIS C
     Dosage: 1000 MG, QD
     Dates: start: 20070316, end: 20071128
  4. BLINDED POST TRIAL THERAPY [Suspect]
     Indication: HEPATITIS C
     Dosage: 1000 MG, QD
     Dates: start: 20070316, end: 20071128
  5. BLINDED PRE TRIAL THERAPY [Suspect]
     Indication: HEPATITIS C
     Dosage: 1000 MG, QD
     Dates: start: 20070316, end: 20071128
  6. BLINDED PRE TRIAL THERAPY [Suspect]
     Indication: HEPATITIS C
     Dosage: 1000 MG, QD
     Dates: start: 20070316, end: 20071128
  7. BLINDED RIBAVIRIN [Suspect]
     Indication: HEPATITIS C
     Dosage: 1000 MG, QD
     Dates: start: 20070316, end: 20071128
  8. VIRAFERONPEG [Suspect]
     Indication: HEPATITIS C
     Dosage: 50 ?G, QW
     Dates: start: 20070316, end: 20071221
  9. VIRAFERONPEG [Suspect]
     Dosage: UNK
  10. AVLOCARDYL [Concomitant]
     Indication: VARICES OESOPHAGEAL
     Dosage: 80 MG, QD
     Dates: start: 20070410
  11. EUROBIOL [Concomitant]
     Indication: PANCREATITIS CHRONIC
     Dosage: 6 DF, TID
     Dates: start: 2001
  12. CARDENSIEL [Concomitant]
     Indication: PRODUCT USED FOR UNKNOWN INDICATION
     Dosage: 0.25 MG, QD
     Dates: start: 201001
  13. TARDYFERON [Concomitant]
     Indication: ANAEMIA
     Dosage: UNK, QD
  14. DEBRIDAT [Concomitant]
     Indication: PAIN
  15. PERFALGAN [Concomitant]
     Indication: PAIN PROPHYLAXIS
     Dosage: 1 G, BID
     Route: 042
     Dates: start: 20100114, end: 20100116
  16. CEFOTAXIME SODIUM [Concomitant]
     Indication: INFECTION PROPHYLAXIS
     Dosage: 1 G, TID
     Route: 042
     Dates: start: 20100114, end: 20100120
  17. FLAGYL [Concomitant]
     Indication: INFECTION PROPHYLAXIS
     Dosage: 500 MG, TID
     Route: 042
     Dates: start: 20100114, end: 20100120

REACTIONS (3)
  - Hepatocellular carcinoma [Fatal]
  - Ascites [Fatal]
  - Oedema due to hepatic disease [Fatal]
